FAERS Safety Report 9157063 (Version 1)
Quarter: 2013Q1

REPORT INFORMATION
  Report Type: Spontaneous
  Country: US (occurrence: US)
  Receive Date: 20130312
  Receipt Date: 20130312
  Transmission Date: 20140127
  Serious: Yes (Other)
  Sender: FDA-Public Use
  Company Number: US-ASTRAZENECA-2013SE14386

PATIENT
  Sex: Male

DRUGS (1)
  1. BRILINTA [Suspect]
     Dosage: UNKNOWN
     Route: 048
     Dates: end: 201302

REACTIONS (1)
  - Intestinal ischaemia [Unknown]
